FAERS Safety Report 13171347 (Version 5)
Quarter: 2017Q2

REPORT INFORMATION
  Report Type: Report from Study
  Country: CO (occurrence: CO)
  Receive Date: 20170201
  Receipt Date: 20170421
  Transmission Date: 20170830
  Serious: Yes (Hospitalization, Other)
  Sender: FDA-Public Use
  Company Number: CO-AMGEN-COLSL2017013644

PATIENT
  Age: 67 Year
  Sex: Male

DRUGS (1)
  1. ARANESP [Suspect]
     Active Substance: DARBEPOETIN ALFA
     Indication: NEPHROGENIC ANAEMIA
     Dosage: 50 MUG, QWK
     Route: 058
     Dates: start: 20160922, end: 20170309

REACTIONS (5)
  - Pain [Not Recovered/Not Resolved]
  - Cough [Not Recovered/Not Resolved]
  - Gastrointestinal haemorrhage [Recovered/Resolved]
  - Drug dose omission [Unknown]
  - Drug ineffective [Not Recovered/Not Resolved]

NARRATIVE: CASE EVENT DATE: 20170116
